FAERS Safety Report 8462685-2 (Version None)
Quarter: 2012Q2

REPORT INFORMATION
  Report Type: 
  Country: None (occurrence: None)
  Receive Date: 20120619
  Receipt Date: 20120619
  Transmission Date: 20120825
  Serious: Yes (Death)
  Sender: FDA-Public Use
  Company Number: None

PATIENT
  Age: 66 Year
  Sex: Female

DRUGS (14)
  1. CYCLOBENZAPRIL [Concomitant]
  2. DOCUSATE [Concomitant]
  3. ROSUVASTATIN [Concomitant]
  4. FOLIC ACID [Concomitant]
  5. METOPROLOL TARTRATE [Concomitant]
  6. GABAPENTIN [Concomitant]
  7. ENALAPRIL MALEATE [Concomitant]
  8. CALCIUM ACETATE [Concomitant]
  9. SENNA-MINT WAF [Concomitant]
  10. VANCOMYCIN [Suspect]
     Indication: ENDOCARDITIS BACTERIAL
     Dosage: IV
     Route: 042
  11. DARBEPOETIN [Concomitant]
  12. FERROUS SULFATE TAB [Concomitant]
  13. ASPIRIN [Concomitant]
  14. CINACALCET HYDROCHLORIDE [Concomitant]

REACTIONS (5)
  - PNEUMONIA [None]
  - HYPOTHERMIA [None]
  - STEVENS-JOHNSON SYNDROME [None]
  - HYPOTENSION [None]
  - TOXIC EPIDERMAL NECROLYSIS [None]
